FAERS Safety Report 10115703 (Version 2)
Quarter: 2015Q1

REPORT INFORMATION
  Report Type: Other
  Country: US (occurrence: US)
  Receive Date: 20140426
  Receipt Date: 20150123
  Transmission Date: 20150720
  Serious: Yes (Hospitalization, Other)
  Sender: FDA-Public Use
  Company Number: US-GSKPPD-2014GSK019094

PATIENT
  Age: 43 Year
  Sex: Female

DRUGS (5)
  1. ECOTRIN [Concomitant]
     Active Substance: ASPIRIN
     Route: 048
  2. AVANDIA [Suspect]
     Active Substance: ROSIGLITAZONE MALEATE
     Indication: DIABETES MELLITUS
     Dosage: AVANDIA WAS NOT LISTED AMONG THE PATIENTS RECORDS REVIEWED.
     Route: 048
  3. LASIX [Concomitant]
     Active Substance: FUROSEMIDE
     Route: 048
  4. CARDURA [Concomitant]
     Active Substance: DOXAZOSIN MESYLATE
     Route: 048
  5. INDERAL [Concomitant]
     Active Substance: PROPRANOLOL HYDROCHLORIDE
     Route: 048

REACTIONS (3)
  - Cardiac failure congestive [Recovered/Resolved]
  - Angina pectoris [Unknown]
  - Coronary artery disease [Recovered/Resolved]

NARRATIVE: CASE EVENT DATE: 20030716
